FAERS Safety Report 21737652 (Version 1)
Quarter: 2022Q4

REPORT INFORMATION
  Report Type: Spontaneous
  Country: RU (occurrence: None)
  Receive Date: 20221216
  Receipt Date: 20221216
  Transmission Date: 20230112
  Serious: Yes (Other)
  Sender: FDA-Public Use
  Company Number: RU-ROCHE-3240375

PATIENT
  Sex: Male

DRUGS (4)
  1. ATEZOLIZUMAB [Suspect]
     Active Substance: ATEZOLIZUMAB
     Indication: Transitional cell carcinoma
     Dosage: ON 23/JUL/2020, 14/AUG/2020, 04/SEP/2020, 24/SEP/2020, 16/OCT/2020, 06/NOV/2020, 26/NOV/2020, 27/NOV
     Route: 065
     Dates: start: 20220620
  2. OMNIPAQUE [Concomitant]
     Active Substance: IOHEXOL
  3. CARBOPLATIN [Concomitant]
     Active Substance: CARBOPLATIN
  4. GEMCITABINE [Concomitant]
     Active Substance: GEMCITABINE

REACTIONS (12)
  - Leukopenia [Unknown]
  - Hydronephrosis [Unknown]
  - Akinesia [Unknown]
  - Aortic arteriosclerosis [Unknown]
  - Mitral valve calcification [Unknown]
  - Adrenal adenoma [Unknown]
  - Arteriosclerosis [Unknown]
  - Dermal cyst [Unknown]
  - Left atrial dilatation [Unknown]
  - Left ventricular hypertrophy [Unknown]
  - Renal cyst [Unknown]
  - Off label use [Unknown]
